FAERS Safety Report 18797222 (Version 1)
Quarter: 2021Q1

REPORT INFORMATION
  Report Type: Spontaneous
  Country: LV (occurrence: LV)
  Receive Date: 20210128
  Receipt Date: 20210128
  Transmission Date: 20210419
  Serious: Yes (Death, Hospitalization, Other)
  Sender: FDA-Public Use
  Company Number: LV-LUPIN PHARMACEUTICALS INC.-2021-00675

PATIENT
  Age: 77 Year
  Sex: Male

DRUGS (4)
  1. METRONIDAZOLE. [Suspect]
     Active Substance: METRONIDAZOLE
     Indication: CLOSTRIDIUM DIFFICILE INFECTION
     Dosage: 500 MILLIGRAM, TID (EVERY 8?HOURS)
     Route: 042
  2. CEFAZOLINE [Suspect]
     Active Substance: CEFAZOLIN SODIUM
     Indication: STAPHYLOCOCCAL INFECTION
     Dosage: 1 GRAM, QID (EVERY 6 HOUR)
     Route: 065
  3. VANCOMYCIN [Suspect]
     Active Substance: VANCOMYCIN
     Indication: CLOSTRIDIUM DIFFICILE INFECTION
     Dosage: 500 MILLIGRAM, QID (EVERY 6 HOURS)
     Route: 048
  4. CEFAZOLINE [Suspect]
     Active Substance: CEFAZOLIN SODIUM
     Indication: OSTEOMYELITIS

REACTIONS (7)
  - Bacteraemia [Fatal]
  - Peritonitis [Fatal]
  - Septic shock [Fatal]
  - Sepsis [Fatal]
  - Clostridium difficile infection [Fatal]
  - Pseudomembranous colitis [Fatal]
  - Pneumonia klebsiella [Fatal]
